FAERS Safety Report 7115385-5 (Version None)
Quarter: 2010Q4

REPORT INFORMATION
  Report Type: 
  Country: None (occurrence: None)
  Receive Date: 20101122
  Receipt Date: 20101110
  Transmission Date: 20110411
  Serious: Yes (Other)
  Sender: FDA-Public Use
  Company Number: US-JNJFOC-20101104432

PATIENT
  Sex: Male
  Weight: 104.33 kg

DRUGS (7)
  1. SANDOZ FENTANYL TRANSERMAL SYSTEM [Suspect]
     Indication: BACK PAIN
     Dosage: NDC#0781-7241-55
     Route: 062
  2. UNKNOWN MULTIPLE MEDICATION [Concomitant]
     Indication: BLOOD CHOLESTEROL
     Route: 048
  3. UNKNOWN MULTIPLE MEDICATION [Concomitant]
     Indication: HYPERTENSION
     Route: 048
  4. UNKNOWN MULTIPLE MEDICATION [Concomitant]
     Indication: GASTROOESOPHAGEAL REFLUX DISEASE
     Route: 048
  5. UNKNOWN MULTIPLE MEDICATION [Concomitant]
     Indication: CARDIAC DISORDER
     Route: 048
  6. INSULIN [Concomitant]
     Indication: DIABETES MELLITUS
     Route: 058
  7. LORA TAB [Concomitant]
     Indication: BREAKTHROUGH PAIN
     Dosage: 3 TIMES PER DAY AS NEEDED
     Route: 048

REACTIONS (4)
  - COGNITIVE DISORDER [None]
  - HALLUCINATION [None]
  - INAPPROPRIATE SCHEDULE OF DRUG ADMINISTRATION [None]
  - URINARY INCONTINENCE [None]
